FAERS Safety Report 7557905-2 (Version None)
Quarter: 2011Q2

REPORT INFORMATION
  Report Type: 
  Country: None (occurrence: None)
  Receive Date: 20110620
  Receipt Date: 20110617
  Transmission Date: 20111010
  Serious: Yes (Other)
  Sender: FDA-Public Use
  Company Number: A0916187A

PATIENT
  Sex: Female
  Weight: 75 kg

DRUGS (8)
  1. RAMIPRIL [Concomitant]
     Dosage: 10MG PER DAY
  2. FUROSEMIDE [Concomitant]
     Dosage: 40MG PER DAY
  3. ADALAT CC [Concomitant]
     Dosage: 60MG PER DAY
  4. ADVAIR DISKUS 100/50 [Suspect]
     Indication: CHRONIC OBSTRUCTIVE PULMONARY DISEASE
     Dosage: 1PUFF TWICE PER DAY
     Route: 055
     Dates: start: 20010101
  5. RABEPRAZOLE SODIUM [Concomitant]
     Dosage: 20MG PER DAY
  6. ASPIRIN [Concomitant]
     Dosage: 81MG PER DAY
  7. LEVOTHYROXINE SODIUM [Concomitant]
     Dosage: .1MG PER DAY
  8. POTASSIUM CHLORIDE [Concomitant]
     Dosage: 8MEQ PER DAY

REACTIONS (27)
  - PRODUCT QUALITY ISSUE [None]
  - NASAL OBSTRUCTION [None]
  - COUGH [None]
  - POOR QUALITY SLEEP [None]
  - ABDOMINAL PAIN UPPER [None]
  - FAECAL VOLUME INCREASED [None]
  - SWELLING FACE [None]
  - EAR PAIN [None]
  - RHINORRHOEA [None]
  - PAIN IN EXTREMITY [None]
  - ABNORMAL FAECES [None]
  - SINUS DISORDER [None]
  - PHOTOPHOBIA [None]
  - EYE PAIN [None]
  - SINUSITIS [None]
  - NOCTURNAL DYSPNOEA [None]
  - INITIAL INSOMNIA [None]
  - RECTAL DISCHARGE [None]
  - PAINFUL DEFAECATION [None]
  - INSOMNIA [None]
  - MUSCLE ATROPHY [None]
  - NASAL OEDEMA [None]
  - CONSTIPATION [None]
  - LETHARGY [None]
  - FLATULENCE [None]
  - VISUAL IMPAIRMENT [None]
  - EPISTAXIS [None]
